FAERS Safety Report 24588075 (Version 2)
Quarter: 2024Q4

REPORT INFORMATION
  Report Type: Spontaneous
  Country: US (occurrence: US)
  Receive Date: 20241107
  Receipt Date: 20241122
  Transmission Date: 20250115
  Serious: Yes (Hospitalization)
  Sender: TEVA
  Company Number: US-TEVA-VS-3261372

PATIENT
  Age: 29 Year
  Sex: Female

DRUGS (4)
  1. EPINEPHRINE [Suspect]
     Active Substance: EPINEPHRINE
     Indication: Epidural analgesia
     Dosage: RECEIVED EPINEPHRINE 5 UG/ML, EPINEPHRINE
     Route: 008
  2. EPINEPHRINE [Suspect]
     Active Substance: EPINEPHRINE
     Indication: Labour pain
  3. BUPIVACAINE\FENTANYL [Suspect]
     Active Substance: BUPIVACAINE\FENTANYL
     Indication: Epidural analgesia
     Dosage: RECEIVED BUPIVACAINE/FENTANYL INFUSION
     Route: 008
  4. LIDOCAINE [Suspect]
     Active Substance: LIDOCAINE
     Indication: Epidural analgesia
     Route: 008

REACTIONS (3)
  - Tinnitus [Unknown]
  - Normal newborn [Unknown]
  - Maternal exposure during pregnancy [Unknown]
